FAERS Safety Report 10254979 (Version 1)
Quarter: 2014Q2

REPORT INFORMATION
  Report Type: Spontaneous
  Country: TR (occurrence: TR)
  Receive Date: 20140624
  Receipt Date: 20140624
  Transmission Date: 20141212
  Serious: Yes (Life-Threatening, Hospitalization)
  Sender: FDA-Public Use
  Company Number: TR-PFIZER INC-2014168612

PATIENT
  Age: 70 Year
  Sex: Female

DRUGS (2)
  1. AMPICILLIN SODIUM/SULBACTAM SODIUM [Suspect]
     Indication: EPIDERMAL NECROSIS
     Dosage: UNK
  2. METAMIZOLE SODIUM [Suspect]
     Indication: HEADACHE
     Dosage: UNK

REACTIONS (6)
  - Kounis syndrome [Recovered/Resolved]
  - Toxic epidermal necrolysis [None]
  - Anaphylactoid reaction [None]
  - Cardio-respiratory arrest [None]
  - Acute myocardial infarction [None]
  - Coronary artery stenosis [None]
